FAERS Safety Report 4889098-4 (Version None)
Quarter: 2005Q4

REPORT INFORMATION
  Report Type: 
  Country: None (occurrence: None)
  Receive Date: 20051215
  Receipt Date: 20050920
  Transmission Date: 20060501
  Serious: Yes (Hospitalization, Congenital Anomaly, Other)
  Sender: FDA-Public Use
  Company Number: 2005130996

PATIENT
  Age: 45 Year
  Sex: Female
  Weight: 58.514 kg

DRUGS (3)
  1. BEXTRA [Suspect]
     Indication: BACK PAIN
     Dosage: 10 MG (10 MG, 1 IN 1 D)
     Dates: start: 20041001, end: 20050401
  2. LOPRESSOR [Suspect]
     Indication: HEART RATE INCREASED
     Dates: start: 20050901
  3. TOPAMAX [Concomitant]

REACTIONS (4)
  - DIZZINESS [None]
  - HYPOTENSION [None]
  - LOSS OF CONSCIOUSNESS [None]
  - MYOCARDIAL INFARCTION [None]
